FAERS Safety Report 7374147-4 (Version None)
Quarter: 2011Q1

REPORT INFORMATION
  Report Type: 
  Country: None (occurrence: None)
  Receive Date: 20110325
  Receipt Date: 20110225
  Transmission Date: 20110831
  Serious: No
  Sender: FDA-Public Use
  Company Number: US-B.I. PHARMACEUTICALS,INC./RIDGEFIELD-2011-BP-06958BP

PATIENT
  Age: 77 Year
  Sex: Male

DRUGS (10)
  1. VITAMIN D [Concomitant]
     Indication: SUPPLEMENTATION THERAPY
  2. GLIPIZIDE [Concomitant]
     Indication: TYPE 2 DIABETES MELLITUS
  3. FLOMAX [Suspect]
     Indication: PROSTATOMEGALY
  4. SOTALOL HCL [Concomitant]
     Indication: HYPERTENSION
  5. MG [Concomitant]
     Indication: SUPPLEMENTATION THERAPY
  6. FINASTERIDE [Concomitant]
     Indication: PROSTATOMEGALY
  7. PRADAXA [Suspect]
     Indication: ATRIAL FIBRILLATION
     Dosage: 300 MG
     Dates: start: 20110216, end: 20110225
  8. MULTI-VITAMINS [Concomitant]
     Indication: SUPPLEMENTATION THERAPY
  9. PEPCID [Concomitant]
     Indication: GASTROOESOPHAGEAL REFLUX DISEASE
  10. SIMVASTATIN [Concomitant]
     Indication: BLOOD CHOLESTEROL INCREASED

REACTIONS (4)
  - ANXIETY [None]
  - ABDOMINAL PAIN UPPER [None]
  - DIZZINESS [None]
  - ATRIAL FIBRILLATION [None]
